FAERS Safety Report 8092033-1 (Version None)
Quarter: 2012Q1

REPORT INFORMATION
  Report Type: 
  Country: None (occurrence: None)
  Receive Date: 20120129
  Receipt Date: 20111108
  Transmission Date: 20120608
  Serious: No
  Sender: FDA-Public Use
  Company Number: US-ABBOTT-11P-163-0870017-00

PATIENT
  Sex: Male
  Weight: 52.21 kg

DRUGS (4)
  1. HUMIRA [Suspect]
     Indication: CROHN'S DISEASE
     Dosage: (80 MG GIVEN OF THE 160 MG INTENDED)
     Dates: start: 20111102, end: 20111102
  2. TRAZODONE HCL [Concomitant]
     Indication: INSOMNIA
  3. TRAZODONE HCL [Concomitant]
     Indication: DEPRESSION
  4. RANITIDINE [Concomitant]
     Indication: DYSPEPSIA

REACTIONS (10)
  - INCORRECT DOSE ADMINISTERED [None]
  - NAUSEA [None]
  - NERVOUSNESS [None]
  - FEELING ABNORMAL [None]
  - PAIN IN EXTREMITY [None]
  - FEELING OF BODY TEMPERATURE CHANGE [None]
  - INFLUENZA LIKE ILLNESS [None]
  - DECREASED APPETITE [None]
  - HYPOPHAGIA [None]
  - DIZZINESS [None]
